FAERS Safety Report 8100298-2 (Version None)
Quarter: 2012Q1

REPORT INFORMATION
  Report Type: 
  Country: None (occurrence: None)
  Receive Date: 20120129
  Receipt Date: 20111123
  Transmission Date: 20120608
  Serious: No
  Sender: FDA-Public Use
  Company Number: US-ABBOTT-11P-163-0877333-00

PATIENT
  Sex: Female
  Weight: 97.156 kg

DRUGS (6)
  1. FISH OIL [Concomitant]
     Indication: CARDIAC DISORDER
  2. SULFASALAZINE [Concomitant]
     Indication: RHEUMATOID ARTHRITIS
  3. HUMIRA [Suspect]
     Indication: RHEUMATOID ARTHRITIS
     Dates: start: 20110601
  4. CELEBREX [Concomitant]
     Indication: RHEUMATOID ARTHRITIS
  5. MULTI-VITAMIN [Concomitant]
     Indication: ROUTINE HEALTH MAINTENANCE
  6. VITAMIN B-12 [Concomitant]
     Indication: VITAMIN B12 DEFICIENCY

REACTIONS (7)
  - NECK PAIN [None]
  - BACK PAIN [None]
  - UNEVALUABLE EVENT [None]
  - PARAESTHESIA [None]
  - ROAD TRAFFIC ACCIDENT [None]
  - POST-TRAUMATIC NECK SYNDROME [None]
  - PAIN [None]
